FAERS Safety Report 7313863-7 (Version None)
Quarter: 2011Q1

REPORT INFORMATION
  Report Type: 
  Country: None (occurrence: None)
  Receive Date: 20110218
  Receipt Date: 20110218
  Transmission Date: 20110831
  Serious: No
  Sender: FDA-Public Use
  Company Number: None

PATIENT
  Age: 64 Year
  Sex: Male

DRUGS (3)
  1. VARENICLINE [Suspect]
     Indication: DEPRESSION
     Dosage: .5 UD PO
     Route: 048
     Dates: start: 20110106, end: 20110127
  2. VARENICLINE [Suspect]
     Indication: DIABETES MELLITUS
     Dosage: .5 UD PO
     Route: 048
     Dates: start: 20110106, end: 20110127
  3. VARENICLINE [Suspect]
     Indication: TOBACCO USER
     Dosage: .5 UD PO
     Route: 048
     Dates: start: 20110106, end: 20110127

REACTIONS (2)
  - AGITATION [None]
  - RASH [None]
